FAERS Safety Report 24135373 (Version 1)
Quarter: 2024Q3

REPORT INFORMATION
  Report Type: Spontaneous
  Country: US (occurrence: US)
  Receive Date: 20240725
  Receipt Date: 20240725
  Transmission Date: 20241016
  Serious: No
  Sender: AUROBINDO
  Company Number: US-AUROBINDO-AUR-APL-2023-059169

PATIENT

DRUGS (1)
  1. ALPRAZOLAM [Suspect]
     Active Substance: ALPRAZOLAM
     Indication: Agoraphobia
     Dosage: UNK
     Route: 065

REACTIONS (3)
  - Feeling abnormal [Unknown]
  - Drug ineffective [Unknown]
  - Product solubility abnormal [Unknown]
